FAERS Safety Report 10074024 (Version 2)
Quarter: 2014Q2

REPORT INFORMATION
  Report Type: Spontaneous
  Country: US (occurrence: US)
  Receive Date: 20140413
  Receipt Date: 20140510
  Transmission Date: 20141212
  Serious: No
  Sender: FDA-Public Use
  Company Number: US-009507513-1404USA004566

PATIENT
  Sex: Female

DRUGS (1)
  1. DULERA [Suspect]
     Dosage: UNK
     Route: 055

REACTIONS (4)
  - Lung infection [Unknown]
  - Oral herpes [Unknown]
  - Sinusitis [Unknown]
  - Wheezing [Unknown]
